FAERS Safety Report 5885726-5 (Version None)
Quarter: 2008Q3

REPORT INFORMATION
  Report Type: 
  Country: None (occurrence: None)
  Receive Date: 20080916
  Receipt Date: 20080904
  Transmission Date: 20090109
  Serious: Yes (Other)
  Sender: FDA-Public Use
  Company Number: US-ELI_LILLY_AND_COMPANY-US200809000956

PATIENT
  Sex: Female

DRUGS (2)
  1. HUMULIN R [Suspect]
     Indication: DIABETES MELLITUS
  2. HUMULIN N [Suspect]
     Indication: DIABETES MELLITUS

REACTIONS (5)
  - BLOOD GLUCOSE DECREASED [None]
  - BLOOD IRON ABNORMAL [None]
  - CATARACT [None]
  - DIZZINESS [None]
  - FEAR [None]
